FAERS Safety Report 15469684 (Version 1)
Quarter: 2018Q4

REPORT INFORMATION
  Report Type: Spontaneous
  Country: US (occurrence: US)
  Receive Date: 20181005
  Receipt Date: 20181005
  Transmission Date: 20190205
  Serious: No
  Sender: FDA-Public Use
  Company Number: US-SA-2018SA271209

PATIENT
  Sex: Female

DRUGS (1)
  1. TOUJEO [Suspect]
     Active Substance: INSULIN GLARGINE
     Dosage: UNKNOWN

REACTIONS (5)
  - Dizziness [Unknown]
  - Nausea [Unknown]
  - Headache [Unknown]
  - Rash [Recovered/Resolved]
  - Vomiting [Unknown]
